FAERS Safety Report 9383135 (Version 2)
Quarter: 2013Q3

REPORT INFORMATION
  Report Type: Report from Study
  Country: US (occurrence: US)
  Receive Date: 20130704
  Receipt Date: 20130712
  Transmission Date: 20140515
  Serious: Yes (Other)
  Sender: FDA-Public Use
  Company Number: US-ROCHE-1244201

PATIENT
  Sex: Male

DRUGS (8)
  1. XOLAIR [Suspect]
     Indication: ASTHMA
     Route: 065
     Dates: start: 201211
  2. NASONEX [Concomitant]
     Indication: ASTHMA
  3. SINGULAIR [Concomitant]
     Indication: ASTHMA
  4. ATROVENT [Concomitant]
     Indication: ASTHMA
  5. ALBUTEROL [Concomitant]
     Indication: ASTHMA
  6. FLOVENT [Concomitant]
     Indication: ASTHMA
  7. QVAR [Concomitant]
     Indication: ASTHMA
  8. ALLEGRA [Concomitant]
     Indication: ASTHMA

REACTIONS (3)
  - Pneumonia [Unknown]
  - Dyspnoea [Unknown]
  - Drug ineffective [Unknown]
